FAERS Safety Report 21605540 (Version 1)
Quarter: 2022Q4

REPORT INFORMATION
  Report Type: Spontaneous
  Country: PT (occurrence: PT)
  Receive Date: 20221116
  Receipt Date: 20221116
  Transmission Date: 20230113
  Serious: Yes (Other)
  Sender: FDA-Public Use
  Company Number: None

PATIENT
  Age: 55 Year
  Sex: Female
  Weight: 65 kg

DRUGS (7)
  1. AMBRISENTAN [Suspect]
     Active Substance: AMBRISENTAN
     Indication: Pulmonary hypertension
     Dosage: 10 MILLIGRAM DAILY; 10MG DAY, UNIT DOSE :10 MG ,FREQUENCY TIME 1 DAYS ,DURATION 2 MONTHS,ADDITIONAL
     Dates: start: 20220617, end: 20220908
  2. IMURAN [Concomitant]
     Active Substance: AZATHIOPRINE
     Indication: Product used for unknown indication
     Dosage: IMURAN 50MG
  3. Aspirin GR [Concomitant]
     Indication: Product used for unknown indication
     Dosage: FORM STRENGTH  100MG,ASPIRIN 100MG
  4. LASIX [Concomitant]
     Active Substance: FUROSEMIDE
     Indication: Product used for unknown indication
     Dosage: LASIX 40MG
  5. Lepicortinol [Concomitant]
     Indication: Product used for unknown indication
     Dosage: LEPICORTINOL 5MG
  6. OMEPRAZOLE [Concomitant]
     Active Substance: OMEPRAZOLE
     Indication: Product used for unknown indication
     Dosage: OMEPRAZOLE 20MG
  7. OLMESARTAN MEDOXOMIL [Concomitant]
     Active Substance: OLMESARTAN MEDOXOMIL
     Indication: Product used for unknown indication
     Dosage: FORM STRENGTH :20 MG,  OLSAR 20MG

REACTIONS (5)
  - Oedema peripheral [Recovered/Resolved]
  - Subcutaneous haematoma [Recovered/Resolved]
  - Vomiting [Recovered/Resolved]
  - Nausea [Recovered/Resolved]
  - Epistaxis [Recovered/Resolved]

NARRATIVE: CASE EVENT DATE: 20220617
